FAERS Safety Report 16850550 (Version 1)
Quarter: 2019Q3

REPORT INFORMATION
  Report Type: Spontaneous
  Country: US (occurrence: US)
  Receive Date: 20190925
  Receipt Date: 20190925
  Transmission Date: 20191005
  Serious: No
  Sender: FDA-Public Use
  Company Number: US-UPSHER-SMITH LABORATORIES, LLC-2019USL00224

PATIENT
  Sex: Male
  Weight: 70.3 kg

DRUGS (5)
  1. BACLOFEN. [Suspect]
     Active Substance: BACLOFEN
     Indication: MUSCLE SPASMS
     Dosage: 5 MG, 3X/DAY
     Route: 048
  2. ALLOPURINOL. [Concomitant]
     Active Substance: ALLOPURINOL
  3. LORAZEPAM. [Concomitant]
     Active Substance: LORAZEPAM
  4. SIMVASTATIN. [Concomitant]
     Active Substance: SIMVASTATIN
  5. PLAVIX [Concomitant]
     Active Substance: CLOPIDOGREL BISULFATE

REACTIONS (1)
  - Saliva altered [Not Recovered/Not Resolved]

NARRATIVE: CASE EVENT DATE: 2018
